FAERS Safety Report 4421336-4 (Version None)
Quarter: 2004Q3

REPORT INFORMATION
  Report Type: 
  Country: None (occurrence: None)
  Receive Date: 20040707
  Receipt Date: 20040317
  Transmission Date: 20050211
  Serious: Yes (Other)
  Sender: FDA-Public Use
  Company Number: 358701

PATIENT
  Age: 42 Year
  Sex: Male
  Weight: 108 kg

DRUGS (1)
  1. FUZEON [Suspect]
     Indication: ACQUIRED IMMUNODEFICIENCY SYNDROME
     Dosage: 90 MG 1 PER 12 HOUR SUBCUTANEOUS
     Route: 058
     Dates: start: 20031107

REACTIONS (5)
  - ILL-DEFINED DISORDER [None]
  - INJECTION SITE REACTION [None]
  - NODULE [None]
  - SKIN DISORDER [None]
  - SWELLING [None]
